FAERS Safety Report 7628589-X (Version None)
Quarter: 2011Q3

REPORT INFORMATION
  Report Type: 
  Country: None (occurrence: None)
  Receive Date: 20110722
  Receipt Date: 20110711
  Transmission Date: 20111222
  Serious: Yes (Hospitalization)
  Sender: FDA-Public Use
  Company Number: US-JNJFOC-20110705297

PATIENT
  Sex: Male

DRUGS (13)
  1. LASIX [Concomitant]
     Route: 065
  2. LANTUS [Concomitant]
     Route: 065
  3. METOPROLOL TARTRATE [Concomitant]
     Route: 065
     Dates: start: 20101001
  4. COUMADIN [Concomitant]
     Route: 065
     Dates: start: 20101001
  5. DIGOXIN [Concomitant]
     Route: 065
  6. WARFARIN SODIUM [Concomitant]
     Route: 065
  7. REMICADE [Suspect]
     Indication: COLITIS ULCERATIVE
     Route: 042
  8. ACECOL [Concomitant]
     Route: 065
  9. LACTOBACILLUS [Concomitant]
     Route: 065
  10. HUMALOG [Concomitant]
     Route: 065
  11. LISINOPRIL [Concomitant]
     Route: 065
  12. CARVEDILOL [Concomitant]
     Route: 065
  13. LIPITOR [Concomitant]
     Route: 065

REACTIONS (2)
  - ATRIAL FIBRILLATION [None]
  - CARDIAC FAILURE CONGESTIVE [None]
